FAERS Safety Report 8269411-0 (Version None)
Quarter: 2012Q2

REPORT INFORMATION
  Report Type: 
  Country: None (occurrence: None)
  Receive Date: 20120409
  Receipt Date: 20120203
  Transmission Date: 20120825
  Serious: No
  Sender: FDA-Public Use
  Company Number: US-ASTRAZENECA-2012SE07647

PATIENT
  Age: 67 Year
  Sex: Male

DRUGS (6)
  1. ASPIRIN [Concomitant]
  2. COREG [Concomitant]
  3. NITROGLYCERIN [Concomitant]
  4. BRILINTA [Suspect]
     Route: 048
  5. FISH OIL [Concomitant]
  6. BRILINTA [Suspect]
     Route: 048

REACTIONS (2)
  - NIGHTMARE [None]
  - HALLUCINATION [None]
